FAERS Safety Report 23995137 (Version 2)
Quarter: 2024Q3

REPORT INFORMATION
  Report Type: Spontaneous
  Country: US (occurrence: US)
  Receive Date: 20240620
  Receipt Date: 20240814
  Transmission Date: 20241016
  Serious: Yes (Other)
  Sender: VERTEX
  Company Number: US-VERTEX PHARMACEUTICALS-2024-010245

PATIENT
  Weight: 63 kg

DRUGS (1)
  1. ELEXACAFTOR\IVACAFTOR\TEZACAFTOR [Suspect]
     Active Substance: ELEXACAFTOR\IVACAFTOR\TEZACAFTOR
     Indication: Cystic fibrosis
     Dosage: UNKNOWN DOSAGE REGIMEN
     Route: 048

REACTIONS (10)
  - Gallbladder operation [Unknown]
  - Cough [Unknown]
  - Chest discomfort [Unknown]
  - Pneumothorax [Unknown]
  - Productive cough [Not Recovered/Not Resolved]
  - Sputum retention [Not Recovered/Not Resolved]
  - Mycobacterium abscessus infection [Unknown]
  - Klebsiella infection [Unknown]
  - Weight increased [Unknown]
  - Influenza [Unknown]
